FAERS Safety Report 22067510 (Version 1)
Quarter: 2023Q1

REPORT INFORMATION
  Report Type: Report from Study
  Country: CA (occurrence: CA)
  Receive Date: 20230307
  Receipt Date: 20230307
  Transmission Date: 20230418
  Serious: Yes (Other)
  Sender: FDA-Public Use
  Company Number: CA-JNJFOC-20230305063

PATIENT
  Sex: Male

DRUGS (1)
  1. IMBRUVICA [Suspect]
     Active Substance: IBRUTINIB
     Indication: Waldenstrom^s macroglobulinaemia
     Dosage: PROVIDE THE REASON WHY SAMPLE IS NOT AVAILABLE :: OTHER  SPECIFY OTHER SAMPLE REASON :: N/A
     Route: 048

REACTIONS (2)
  - Gallbladder operation [Unknown]
  - Off label use [Unknown]
